FAERS Safety Report 19768408 (Version 2)
Quarter: 2022Q1

REPORT INFORMATION
  Report Type: Report from Study
  Country: AR (occurrence: AR)
  Receive Date: 20210830
  Receipt Date: 20220211
  Transmission Date: 20220423
  Serious: Yes (Death, Life-Threatening, Other)
  Sender: FDA-Public Use
  Company Number: AR-GILEAD-2021-0534486

PATIENT
  Age: 65 Year
  Sex: Male

DRUGS (24)
  1. REMDESIVIR [Suspect]
     Active Substance: REMDESIVIR
     Indication: COVID-19
     Dosage: UNK, QD
     Route: 042
     Dates: start: 20210513
  2. INFLIXIMAB [Suspect]
     Active Substance: INFLIXIMAB
     Indication: COVID-19
     Dosage: UNK UNK, ONCE
     Route: 042
     Dates: start: 20210513
  3. PLACEBO [Suspect]
     Active Substance: UNSPECIFIED INGREDIENT
     Indication: COVID-19
     Dosage: UNK UNK, ONCE
     Route: 042
     Dates: start: 20210513
  4. AMPICILLIN SODIUM\SULBACTAM SODIUM [Concomitant]
     Active Substance: AMPICILLIN SODIUM\SULBACTAM SODIUM
  5. CLARITHROMYCIN [Concomitant]
     Active Substance: CLARITHROMYCIN
  6. CLONAZEPAM [Concomitant]
     Active Substance: CLONAZEPAM
  7. DEXAMETHASONE [Concomitant]
     Active Substance: DEXAMETHASONE
  8. FENTANYL [Concomitant]
     Active Substance: FENTANYL
  9. FUROSEMIDE [Concomitant]
     Active Substance: FUROSEMIDE
  10. HEPARIN [Concomitant]
     Active Substance: HEPARIN SODIUM
  11. HYDROCORTISONE [Concomitant]
     Active Substance: HYDROCORTISONE
  12. MIDAZOLAM [Concomitant]
     Active Substance: MIDAZOLAM
  13. NOREPINEPHRINE BITARTRATE [Concomitant]
     Active Substance: NOREPINEPHRINE BITARTRATE
  14. NYSTATIN [Concomitant]
     Active Substance: NYSTATIN
  15. PANCURONIUM [Concomitant]
     Active Substance: PANCURONIUM
  16. PIPERACILLIN SODIUM\TAZOBACTAM SODIUM [Concomitant]
     Active Substance: PIPERACILLIN SODIUM\TAZOBACTAM SODIUM
  17. RANITIDINE [Concomitant]
     Active Substance: RANITIDINE
  18. SODIUM CHLORIDE [Concomitant]
     Active Substance: SODIUM CHLORIDE
  19. VANCOMYCIN [Concomitant]
     Active Substance: VANCOMYCIN
  20. VASOPRESSIN [Concomitant]
     Active Substance: VASOPRESSIN
  21. CILASTATIN SODIUM\IMIPENEM [Concomitant]
     Active Substance: CILASTATIN SODIUM\IMIPENEM
  22. CLOSTIN [Concomitant]
  23. LACTULOSE [Concomitant]
     Active Substance: LACTULOSE
  24. REMIFENTANIL [Concomitant]
     Active Substance: REMIFENTANIL

REACTIONS (2)
  - Pneumonia [Fatal]
  - Septic shock [Fatal]

NARRATIVE: CASE EVENT DATE: 20210528
